FAERS Safety Report 7525529-9 (Version None)
Quarter: 2011Q2

REPORT INFORMATION
  Report Type: 
  Country: None (occurrence: None)
  Receive Date: 20110606
  Receipt Date: 20110531
  Transmission Date: 20111010
  Serious: Yes (Death)
  Sender: FDA-Public Use
  Company Number: DK-ROCHE-780129

PATIENT
  Sex: Male

DRUGS (2)
  1. ACTEMRA [Suspect]
     Route: 065
     Dates: start: 20090916, end: 20110112
  2. METHOTREXATE [Concomitant]
     Route: 058
     Dates: start: 20071010, end: 20110112

REACTIONS (1)
  - LUNG NEOPLASM MALIGNANT [None]
